FAERS Safety Report 9338867 (Version 2)
Quarter: 2013Q2

REPORT INFORMATION
  Report Type: Report from Study
  Country: CA (occurrence: CA)
  Receive Date: 20130610
  Receipt Date: 20130612
  Transmission Date: 20140414
  Serious: Yes (Hospitalization, Other)
  Sender: FDA-Public Use
  Company Number: CA-ROCHE-1093823

PATIENT
  Age: 70 Year
  Sex: Male

DRUGS (8)
  1. TRASTUZUMAB [Suspect]
     Indication: GASTROINTESTINAL CARCINOMA
     Route: 042
     Dates: start: 20110128
  2. XELODA [Suspect]
     Indication: GASTRIC CANCER
     Route: 048
     Dates: start: 201002, end: 201006
  3. COTAZYM [Concomitant]
  4. VITAMIN C [Concomitant]
  5. GINSENG TEA [Concomitant]
  6. VITAMIN B12 [Concomitant]
     Route: 065
  7. TYLENOL [Concomitant]
     Route: 048
     Dates: start: 20110128
  8. BENADRYL (CANADA) [Concomitant]
     Route: 048
     Dates: start: 20110128

REACTIONS (4)
  - Abdominal pain [Recovered/Resolved]
  - Recurrent cancer [Unknown]
  - Tumour compression [Unknown]
  - Sepsis [Not Recovered/Not Resolved]
